FAERS Safety Report 7082522-0 (Version None)
Quarter: 2010Q4

REPORT INFORMATION
  Report Type: 
  Country: None (occurrence: None)
  Receive Date: 20101026
  Receipt Date: 20101014
  Transmission Date: 20110411
  Serious: Yes (Life-Threatening, Hospitalization, Other)
  Sender: FDA-Public Use
  Company Number: DSA_42857_2010

PATIENT
  Age: 37 Year
  Sex: Male

DRUGS (2)
  1. CARDIZEM LA [Suspect]
     Indication: PRODUCT USED FOR UNKNOWN INDICATION
     Dosage: (10800 MG 1X, ORAL)
     Route: 048
     Dates: start: 20100222
  2. ETHANOL [Suspect]
     Indication: PRODUCT USED FOR UNKNOWN INDICATION
     Dosage: (DF ORAL)
     Route: 048
     Dates: start: 20100222

REACTIONS (21)
  - ACIDOSIS [None]
  - ARRHYTHMIA [None]
  - BLOOD CALCIUM INCREASED [None]
  - BLOOD CREATININE INCREASED [None]
  - BLOOD UREA INCREASED [None]
  - BRADYCARDIA [None]
  - CONDUCTION DISORDER [None]
  - CONFUSIONAL STATE [None]
  - CRYSTALLURIA [None]
  - DISSEMINATED INTRAVASCULAR COAGULATION [None]
  - HYPERGLYCAEMIA [None]
  - HYPOKALAEMIA [None]
  - HYPOTENSION [None]
  - INTENTIONAL OVERDOSE [None]
  - LETHARGY [None]
  - NAUSEA [None]
  - OLIGURIA [None]
  - SUICIDE ATTEMPT [None]
  - TACHYPNOEA [None]
  - TREMOR [None]
  - UPPER GASTROINTESTINAL HAEMORRHAGE [None]
